FAERS Safety Report 22051262 (Version 1)
Quarter: 2023Q1

REPORT INFORMATION
  Report Type: Report from Study
  Country: US (occurrence: US)
  Receive Date: 20230301
  Receipt Date: 20230301
  Transmission Date: 20230418
  Serious: Yes (Hospitalization)
  Sender: FDA-Public Use
  Company Number: US-TAKEDA-US201942346

PATIENT
  Sex: Female

DRUGS (3)
  1. ICATIBANT [Suspect]
     Active Substance: ICATIBANT ACETATE
     Indication: Asthma
     Dosage: 30 MILLIGRAM
     Route: 058
     Dates: start: 20180807
  2. ICATIBANT [Suspect]
     Active Substance: ICATIBANT ACETATE
     Indication: Asthma
     Dosage: 30 MILLIGRAM
     Route: 058
     Dates: start: 20180807
  3. TAKHZYRO [Suspect]
     Active Substance: LANADELUMAB-FLYO
     Indication: Asthma
     Dosage: 300 MILLIGRAM, Q2WEEKS
     Route: 058
     Dates: start: 20190323

REACTIONS (5)
  - Asthma [Unknown]
  - Vomiting [Unknown]
  - Heart rate increased [Unknown]
  - Headache [Unknown]
  - Nausea [Unknown]
